FAERS Safety Report 6774620-3 (Version None)
Quarter: 2010Q2

REPORT INFORMATION
  Report Type: 
  Country: None (occurrence: None)
  Receive Date: 20100617
  Receipt Date: 20100604
  Transmission Date: 20101027
  Serious: Yes (Hospitalization, Other)
  Sender: FDA-Public Use
  Company Number: ZA-GENZYME-FABR-1001416

PATIENT

DRUGS (2)
  1. FABRAZYME [Suspect]
     Indication: FABRY'S DISEASE
     Dosage: 70 MG, 1X/W
     Route: 042
     Dates: start: 20080601
  2. FABRAZYME [Suspect]
     Dosage: 35 MG, 1X/W
     Route: 042

REACTIONS (4)
  - DISEASE PROGRESSION [None]
  - RENAL IMPAIRMENT [None]
  - SYNCOPE [None]
  - TRANSIENT ISCHAEMIC ATTACK [None]
